FAERS Safety Report 13224702 (Version 1)
Quarter: 2017Q1

REPORT INFORMATION
  Report Type: Report from Study
  Country: CN (occurrence: CN)
  Receive Date: 20170213
  Receipt Date: 20170213
  Transmission Date: 20170428
  Serious: Yes (Death)
  Sender: FDA-Public Use
  Company Number: CN-ROCHE-1762312

PATIENT
  Sex: Male
  Weight: 65 kg

DRUGS (1)
  1. AVASTIN [Suspect]
     Active Substance: BEVACIZUMAB
     Indication: RECTAL CANCER
     Route: 041
     Dates: start: 20151222

REACTIONS (4)
  - Constipation [Unknown]
  - Cardiac failure [Fatal]
  - Foot fracture [Unknown]
  - Coagulation test abnormal [Unknown]
